FAERS Safety Report 5520904-6 (Version None)
Quarter: 2007Q4

REPORT INFORMATION
  Report Type: 
  Country: None (occurrence: None)
  Receive Date: 20071119
  Receipt Date: 20071109
  Transmission Date: 20080405
  Serious: No
  Sender: FDA-Public Use
  Company Number: US-ELI_LILLY_AND_COMPANY-US200711003410

PATIENT
  Age: 48 Year
  Sex: Female

DRUGS (3)
  1. CYMBALTA [Suspect]
     Dosage: 30 MG, UNK
     Dates: start: 20070401
  2. CYMBALTA [Suspect]
     Dosage: 60 MG, UNK
     Dates: end: 20070901
  3. LIPITOR [Concomitant]
     Dosage: 1 D/F, UNK

REACTIONS (1)
  - HEPATIC ENZYME INCREASED [None]
